FAERS Safety Report 11638249 (Version 1)
Quarter: 2015Q4

REPORT INFORMATION
  Report Type: Spontaneous
  Country: US (occurrence: US)
  Receive Date: 20151016
  Receipt Date: 20151016
  Transmission Date: 20160304
  Serious: No
  Sender: FDA-Public Use
  Company Number: US-INDIVIOR-RB-72275-2014

PATIENT
  Age: 36 Year
  Sex: Female
  Weight: 87.75 kg

DRUGS (10)
  1. MELOXICAM. [Concomitant]
     Active Substance: MELOXICAM
     Indication: SEIZURE
     Dosage: 1 TABLET (15 MG) ONCE DAILY
     Route: 048
  2. SUBOXONE [Suspect]
     Active Substance: BUPRENORPHINE HYDROCHLORIDE\NALOXONE HYDROCHLORIDE
     Indication: DRUG DEPENDENCE
     Dosage: FILM THREE TIMES A DAY
     Route: 060
  3. ROBAXIN-750 [Concomitant]
     Indication: ARTHRITIS
     Dosage: 1 TAB THREE TIMES A DAY AS NEEDED
     Route: 065
  4. ALPRAZOLAM. [Concomitant]
     Active Substance: ALPRAZOLAM
     Indication: NECK PAIN
     Dosage: 1 MG, 1 TABLET THREE TIMES DAILY AS NEEDED
     Route: 048
  5. AMITRYN [Concomitant]
     Indication: PRODUCT USED FOR UNKNOWN INDICATION
     Dosage: 24 MG
     Route: 065
  6. AMITRIPTYLINE [Concomitant]
     Active Substance: AMITRIPTYLINE
     Indication: DRUG DEPENDENCE
     Dosage: 1 TABLET (50 MG))AS NEEDED
     Route: 048
  7. SUBOXONE [Suspect]
     Active Substance: BUPRENORPHINE HYDROCHLORIDE\NALOXONE HYDROCHLORIDE
     Indication: DRUG DEPENDENCE
     Dosage: UNK
     Route: 060
     Dates: start: 20140413
  8. SUBOXONE [Suspect]
     Active Substance: BUPRENORPHINE HYDROCHLORIDE\NALOXONE HYDROCHLORIDE
     Indication: DRUG DEPENDENCE
     Dosage: 1 STRIP TID
     Route: 065
  9. CELEXA [Concomitant]
     Active Substance: CITALOPRAM HYDROBROMIDE
     Indication: INTERVERTEBRAL DISC DEGENERATION
     Dosage: 1 TAB (20 MG), QD,
     Route: 048
  10. DICYCLOMINE [Concomitant]
     Active Substance: DICYCLOMINE HYDROCHLORIDE
     Indication: CERVICAL SPINAL STENOSIS
     Dosage: 20 MG 2 TABLET THREE TIMES DAILY AS NEEDED
     Route: 048

REACTIONS (5)
  - Weight increased [Not Recovered/Not Resolved]
  - Affective disorder [Unknown]
  - Drug prescribing error [Unknown]
  - Back pain [Not Recovered/Not Resolved]
  - Condition aggravated [Unknown]

NARRATIVE: CASE EVENT DATE: 201405
